FAERS Safety Report 13655859 (Version 2)
Quarter: 2017Q2

REPORT INFORMATION
  Report Type: Report from Study
  Country: CA (occurrence: CA)
  Receive Date: 20170615
  Receipt Date: 20170622
  Transmission Date: 20170830
  Serious: Yes (Other)
  Sender: FDA-Public Use
  Company Number: CA-ORION CORPORATION ORION PHARMA-TREX2017-1735

PATIENT
  Sex: Male

DRUGS (9)
  1. METHOTREXATE (TRADE NAME UNKNOWN) [Suspect]
     Active Substance: METHOTREXATE
     Route: 065
     Dates: start: 2017
  2. SULFASALAZINE. [Concomitant]
     Active Substance: SULFASALAZINE
     Route: 065
     Dates: start: 2007
  3. DEPO-MEDROL [Concomitant]
     Active Substance: METHYLPREDNISOLONE ACETATE
     Route: 065
  4. ENBREL [Suspect]
     Active Substance: ETANERCEPT
     Route: 065
     Dates: start: 2014
  5. FOLIC ACID. [Concomitant]
     Active Substance: FOLIC ACID
     Route: 065
  6. ENBREL [Suspect]
     Active Substance: ETANERCEPT
     Route: 065
     Dates: start: 201611
  7. HYDROXYCHLOROQUINE [Concomitant]
     Active Substance: HYDROXYCHLOROQUINE
     Route: 065
     Dates: start: 2007
  8. ENBREL [Suspect]
     Active Substance: ETANERCEPT
     Indication: RHEUMATOID ARTHRITIS
     Route: 065
     Dates: start: 20130531, end: 201308
  9. CELEBREX [Concomitant]
     Active Substance: CELECOXIB
     Route: 065

REACTIONS (4)
  - Abdominal discomfort [Unknown]
  - Rheumatoid arthritis [Unknown]
  - Dry eye [Unknown]
  - Dry mouth [Unknown]
